FAERS Safety Report 8829618 (Version 1)
Quarter: 2012Q4

REPORT INFORMATION
  Report Type: Spontaneous
  Country: US (occurrence: None)
  Receive Date: 20121005
  Receipt Date: 20121005
  Transmission Date: 20130627
  Serious: Yes (Other)
  Sender: FDA-Public Use
  Company Number: None

PATIENT
  Age: 82 Year
  Sex: Female

DRUGS (5)
  1. REVLIMID [Suspect]
     Indication: MULTIPLE MYELOMA
     Dosage: x21/28d
     Route: 048
     Dates: start: 20120807, end: 20120813
  2. ZOMETA [Concomitant]
  3. AMLODIPINE [Concomitant]
  4. ACYCLOVIR [Concomitant]
  5. FENTANYL PATCH [Concomitant]

REACTIONS (3)
  - Rash erythematous [None]
  - Rash [None]
  - Pruritus [None]
